FAERS Safety Report 9699556 (Version 2)
Quarter: 2013Q4

REPORT INFORMATION
  Report Type: Spontaneous
  Country: US (occurrence: US)
  Receive Date: 20131120
  Receipt Date: 20131120
  Transmission Date: 20140711
  Serious: No
  Sender: FDA-Public Use
  Company Number: US-TEVA-359691USA

PATIENT
  Age: 28 Year
  Sex: Female
  Weight: 70.37 kg

DRUGS (2)
  1. PARAGARD 380A [Suspect]
     Indication: CONTRACEPTION
     Route: 015
     Dates: start: 20110209, end: 20120321
  2. PARAGARD 380A [Suspect]
     Route: 015
     Dates: start: 20120321, end: 201209

REACTIONS (3)
  - Device expulsion [Recovered/Resolved]
  - Metrorrhagia [Unknown]
  - Device dislocation [Unknown]
